FAERS Safety Report 8005040-1 (Version None)
Quarter: 2011Q4

REPORT INFORMATION
  Report Type: 
  Country: None (occurrence: None)
  Receive Date: 20111220
  Receipt Date: 20111205
  Transmission Date: 20120403
  Serious: Yes (Death)
  Sender: FDA-Public Use
  Company Number: TR-JNJFOC-20110512061

PATIENT
  Age: 62 Year
  Sex: Male

DRUGS (8)
  1. DACOGEN [Suspect]
     Indication: MYELODYSPLASTIC SYNDROME
     Dosage: 20 MG/M2, INTRAVENOUS
     Route: 042
     Dates: start: 20100901, end: 20101201
  2. MOXIFLOXACIN HCL [Concomitant]
  3. ACYCLOVIR [Concomitant]
  4. DIGOXIN [Concomitant]
  5. FUROSEMIDE [Concomitant]
  6. VALPROATE SODIUM [Concomitant]
  7. GRANISETRON [Concomitant]
  8. FLUCONAZOLE [Concomitant]

REACTIONS (6)
  - CARDIAC ARREST [None]
  - BLOOD ALBUMIN DECREASED [None]
  - HAEMOGLOBIN DECREASED [None]
  - SUDDEN CARDIAC DEATH [None]
  - VENTRICULAR FIBRILLATION [None]
  - ARRHYTHMIA [None]
